FAERS Safety Report 21260199 (Version 2)
Quarter: 2022Q4

REPORT INFORMATION
  Report Type: Spontaneous
  Country: US (occurrence: US)
  Receive Date: 20220826
  Receipt Date: 20221025
  Transmission Date: 20230113
  Serious: No
  Sender: FDA-Public Use
  Company Number: US-PFIZER INC-202201063724

PATIENT
  Age: 10 Year
  Sex: Female
  Weight: 83.91 kg

DRUGS (1)
  1. GENOTROPIN [Suspect]
     Active Substance: SOMATROPIN
     Indication: Blood growth hormone abnormal
     Dosage: 1.6 MG, 1X/DAY (ONCE A DAY BY INJECTION)
     Dates: start: 2020

REACTIONS (4)
  - Expired device used [Unknown]
  - Drug dose omission by device [Unknown]
  - Device power source issue [Unknown]
  - Device information output issue [Unknown]
